FAERS Safety Report 22203632 (Version 1)
Quarter: 2023Q2

REPORT INFORMATION
  Report Type: Spontaneous
  Country: US (occurrence: US)
  Receive Date: 20230412
  Receipt Date: 20230412
  Transmission Date: 20230721
  Serious: No
  Sender: FDA-Public Use
  Company Number: US-JNJFOC-20200236850

PATIENT
  Age: 78 Year
  Sex: Female
  Weight: 74.910 kg

DRUGS (1)
  1. IMODIUM A-D [Suspect]
     Active Substance: LOPERAMIDE HYDROCHLORIDE
     Indication: Frequent bowel movements
     Dosage: HALF A REGULAR DOSE EVERY AFTER 3 DAYS; PRODUCT STARTED TWO WEEKS AGO; STOPPED ON WEDNESDAY NIGHT
     Route: 048
     Dates: start: 202002, end: 202002

REACTIONS (1)
  - Incorrect dose administered [Unknown]

NARRATIVE: CASE EVENT DATE: 20200201
